FAERS Safety Report 10041023 (Version 3)
Quarter: 2014Q3

REPORT INFORMATION
  Report Type: Spontaneous
  Country: US (occurrence: US)
  Receive Date: 20140327
  Receipt Date: 20140811
  Transmission Date: 20150326
  Serious: Yes (Hospitalization, Other)
  Sender: FDA-Public Use
  Company Number: US-BAYER-2014-042446

PATIENT
  Age: 31 Year
  Sex: Female
  Weight: 95.24 kg

DRUGS (1)
  1. MIRENA [Suspect]
     Active Substance: LEVONORGESTREL
     Indication: CONTRACEPTION
     Dosage: 20 MCG/24HR, CONT
     Route: 015
     Dates: start: 20091215, end: 20120419

REACTIONS (11)
  - Emotional distress [None]
  - Depression [None]
  - Off label use [None]
  - Drug ineffective [None]
  - Anxiety [None]
  - Uterine perforation [None]
  - Haemorrhage [None]
  - Ectopic pregnancy with contraceptive device [None]
  - Injury [None]
  - Ruptured ectopic pregnancy [None]
  - Pain [None]

NARRATIVE: CASE EVENT DATE: 201204
